FAERS Safety Report 9838083 (Version 1)
Quarter: 2014Q1

REPORT INFORMATION
  Report Type: Spontaneous
  Country: FR (occurrence: FR)
  Receive Date: 20140123
  Receipt Date: 20140123
  Transmission Date: 20141002
  Serious: Yes (Hospitalization)
  Sender: FDA-Public Use
  Company Number: FR-UCBSA-108927

PATIENT
  Age: 83 Year
  Sex: Female

DRUGS (9)
  1. VIMPAT [Suspect]
     Indication: EPILEPSY
     Route: 048
     Dates: start: 20130528, end: 20130602
  2. CARDENSIEL [Concomitant]
     Dosage: 2.5 MG
     Dates: start: 20130527
  3. CRESTOR [Concomitant]
     Dosage: 5 MG
     Dates: start: 20130527
  4. GLICAZIDE [Concomitant]
     Dosage: 30 MG
     Dates: start: 20130527
  5. KARDEGIC [Concomitant]
     Dosage: 75 MG
     Dates: start: 20130527
  6. KEPPRA [Concomitant]
     Dosage: 500 MG
     Dates: start: 20130527
  7. TRANSIPEG [Concomitant]
     Dates: start: 20130527
  8. DOLIPRANE [Concomitant]
     Dates: start: 20130527
  9. VITAMIN D [Concomitant]
     Dates: start: 20130527

REACTIONS (2)
  - Atrioventricular block [Recovered/Resolved]
  - Electrocardiogram PR prolongation [Recovered/Resolved]
